FAERS Safety Report 10069326 (Version 1)
Quarter: 2014Q2

REPORT INFORMATION
  Report Type: Spontaneous
  Country: DE (occurrence: DE)
  Receive Date: 20140409
  Receipt Date: 20140409
  Transmission Date: 20141212
  Serious: Yes (Disabling)
  Sender: FDA-Public Use
  Company Number: GXKR2014DE001532

PATIENT
  Sex: 0

DRUGS (3)
  1. ESTRADIOL [Suspect]
     Indication: MENOPAUSAL SYMPTOMS
     Dosage: 2X1/D
     Route: 048
     Dates: start: 201308, end: 201309
  2. AFLURIA [Suspect]
     Indication: INFLUENZA IMMUNISATION
     Dates: start: 20131023
  3. PROGESTERONE [Suspect]
     Indication: MENOPAUSAL SYMPTOMS
     Dosage: 2X1/D
     Route: 048
     Dates: start: 201308, end: 201309

REACTIONS (2)
  - Narcolepsy [Unknown]
  - Sleep attacks [Unknown]
